FAERS Safety Report 25421970 (Version 1)
Quarter: 2025Q2

REPORT INFORMATION
  Report Type: Spontaneous
  Country: EG (occurrence: EG)
  Receive Date: 20250611
  Receipt Date: 20250611
  Transmission Date: 20250716
  Serious: Yes (Other)
  Sender: HIKMA
  Company Number: EG-HIKMA PHARMACEUTICALS USA INC.-EG-H14001-25-07492

PATIENT
  Age: 78 Year
  Sex: Female
  Weight: 68 kg

DRUGS (2)
  1. PACLITAXEL [Suspect]
     Active Substance: PACLITAXEL
     Indication: Breast cancer
     Dosage: 136 MILLIGRAM, WEEKLY
     Route: 041
  2. PACLITAXEL [Suspect]
     Active Substance: PACLITAXEL
     Dosage: 136 MILLIGRAM, WEEKLY
     Route: 041
     Dates: start: 20240225

REACTIONS (3)
  - Alanine aminotransferase increased [Unknown]
  - Neutropenia [Unknown]
  - Leukopenia [Unknown]

NARRATIVE: CASE EVENT DATE: 20250304
